FAERS Safety Report 16111081 (Version 1)
Quarter: 2019Q2

REPORT INFORMATION
  Report Type: Spontaneous
  Country: US (occurrence: US)
  Receive Date: 20190322
  Receipt Date: 20190322
  Transmission Date: 20190711
  Serious: Yes (Life-Threatening, Hospitalization)
  Sender: FDA-Public Use
  Company Number: None

PATIENT
  Age: 58 Year
  Sex: Male

DRUGS (2)
  1. TAFINLAR [Suspect]
     Active Substance: DABRAFENIB MESYLATE
     Indication: NON-SMALL CELL LUNG CANCER
     Route: 048
  2. MEKINIST [Suspect]
     Active Substance: TRAMETINIB DIMETHYL SULFOXIDE
     Indication: NON-SMALL CELL LUNG CANCER
     Route: 048

REACTIONS (10)
  - Myalgia [None]
  - Acute kidney injury [None]
  - Thrombocytopenia [None]
  - Pyrexia [None]
  - Muscular weakness [None]
  - Dehydration [None]
  - Arthralgia [None]
  - Headache [None]
  - Non-small cell lung cancer [None]
  - Rhabdomyolysis [None]

NARRATIVE: CASE EVENT DATE: 20190307
